FAERS Safety Report 4864129-6 (Version None)
Quarter: 2005Q4

REPORT INFORMATION
  Report Type: 
  Country: None (occurrence: None)
  Receive Date: 20051222
  Receipt Date: 20051202
  Transmission Date: 20060501
  Serious: Yes (Death)
  Sender: FDA-Public Use
  Company Number: JP-JPN-A20052975

PATIENT
  Age: 59 Year
  Sex: Male

DRUGS (16)
  1. HEPSERA [Suspect]
     Indication: HEPATIC CIRRHOSIS
     Dosage: 10MG PER DAY
     Route: 048
     Dates: start: 20030813, end: 20040926
  2. ZEFIX [Suspect]
     Indication: HEPATIC CIRRHOSIS
     Dosage: 100MG PER DAY
     Route: 048
     Dates: start: 20010110, end: 20040926
  3. AMINOLEBAN EN [Concomitant]
     Route: 048
  4. CLARITHROMYCIN [Concomitant]
     Route: 048
  5. ASTOMIN [Concomitant]
     Route: 048
  6. LASIX [Concomitant]
     Route: 048
  7. ALDACTONE [Concomitant]
     Route: 048
  8. URSO [Concomitant]
     Route: 048
  9. KAYWAN [Concomitant]
     Route: 048
  10. MONILAC [Concomitant]
     Route: 048
  11. TAKEPRON [Concomitant]
     Route: 048
  12. ALLELOCK [Concomitant]
     Route: 048
  13. AMINOLEBAN [Concomitant]
     Route: 042
  14. NEO-MINOPHAGEN C [Concomitant]
     Route: 042
  15. KANAMYCIN [Concomitant]
     Route: 048
  16. SOLDACTONE [Concomitant]
     Route: 042

REACTIONS (1)
  - ASPARTATE AMINOTRANSFERASE INCREASED [None]
